FAERS Safety Report 15271182 (Version 2)
Quarter: 2018Q3

REPORT INFORMATION
  Report Type: Spontaneous
  Country: FR (occurrence: FR)
  Receive Date: 20180813
  Receipt Date: 20180829
  Transmission Date: 20181010
  Serious: Yes (Other)
  Sender: FDA-Public Use
  Company Number: FR-ALSI-201800489

PATIENT
  Age: 64 Year
  Sex: Male

DRUGS (1)
  1. OXYGEN. [Suspect]
     Active Substance: OXYGEN
     Indication: DEPENDENCE ON OXYGEN THERAPY
     Route: 055

REACTIONS (3)
  - Intentional product misuse [Recovered/Resolved]
  - Accident [Recovered/Resolved]
  - Thermal burn [Recovered/Resolved]
